FAERS Safety Report 26130268 (Version 2)
Quarter: 2025Q4

REPORT INFORMATION
  Report Type: Report from Study
  Country: CA (occurrence: CA)
  Receive Date: 20251208
  Receipt Date: 20251231
  Transmission Date: 20260118
  Serious: Yes (Other)
  Sender: TAKEDA
  Company Number: CA-TAKEDA-2024TUS014376

PATIENT
  Age: 74 Year
  Sex: Male

DRUGS (19)
  1. VEDOLIZUMAB [Suspect]
     Active Substance: VEDOLIZUMAB
     Indication: Crohn^s disease
     Dosage: 300 MILLIGRAM
  2. VEDOLIZUMAB [Suspect]
     Active Substance: VEDOLIZUMAB
     Dosage: 300 MILLIGRAM
  3. VEDOLIZUMAB [Suspect]
     Active Substance: VEDOLIZUMAB
     Dosage: 300 MILLIGRAM
  4. VEDOLIZUMAB [Suspect]
     Active Substance: VEDOLIZUMAB
     Dosage: 300 MILLIGRAM, Q4WEEKS
     Dates: start: 20241031
  5. VEDOLIZUMAB [Suspect]
     Active Substance: VEDOLIZUMAB
     Dosage: 300 MILLIGRAM, Q4WEEKS
  6. ELIQUIS [Concomitant]
     Active Substance: APIXABAN
     Dosage: 5 MILLIGRAM, BID
  7. ROSUVASTATIN [Concomitant]
     Active Substance: ROSUVASTATIN
     Dosage: 10 MILLIGRAM, QD
  8. VITAMIN B COMPLEX [Concomitant]
     Active Substance: CYANOCOBALAMIN\DEXPANTHENOL\NIACINAMIDE\PYRIDOXINE HYDROCHLORIDE\RIBOFLAVIN 5^-PHOSPHATE SODIUM\THIA
     Dosage: UNK UNK, QD
  9. VITAMIN D [Concomitant]
     Active Substance: VITAMIN D NOS
     Dosage: 4000 MILLIGRAM, QD
  10. OMEGA 3 [Concomitant]
     Active Substance: CAPSAICIN
     Dosage: 1200 MILLIGRAM, BID
  11. VITAMIN K [Concomitant]
     Active Substance: PHYTONADIONE
     Dosage: 120 MILLIGRAM, QD
  12. ACES+ZN [Concomitant]
     Dosage: UNK
  13. BETA CAROTENE [Concomitant]
     Active Substance: BETA CAROTENE
     Dosage: 3000 MILLIGRAM
  14. VITAMIN C [Concomitant]
     Active Substance: ASCORBIC ACID
     Dosage: 250 MILLIGRAM
  15. VITAMIN E [Concomitant]
     Active Substance: .ALPHA.-TOCOPHEROL
     Dosage: 134 MILLIGRAM
  16. SELENIUM [Concomitant]
     Active Substance: SELENIUM
     Dosage: 50 MILLIGRAM
  17. ZINC [Concomitant]
     Active Substance: ZINC
     Dosage: 7.5 MILLIGRAM
  18. MAGNESIUM [Concomitant]
     Active Substance: MAGNESIUM
     Dosage: 200 MILLIGRAM, QD
  19. Black seed oil [Concomitant]
     Dosage: UNK

REACTIONS (4)
  - Uveitis [Unknown]
  - Drug ineffective [Unknown]
  - Gastrointestinal scarring [Unknown]
  - Gastrointestinal wall thickening [Unknown]
